FAERS Safety Report 7413284-2 (Version None)
Quarter: 2011Q2

REPORT INFORMATION
  Report Type: 
  Country: None (occurrence: None)
  Receive Date: 20110413
  Receipt Date: 20110404
  Transmission Date: 20111010
  Serious: Yes (Other)
  Sender: FDA-Public Use
  Company Number: FR-PFIZER INC-2011074731

PATIENT
  Age: 78 Year
  Sex: Male

DRUGS (7)
  1. CORDARONE [Suspect]
     Dosage: UNK
     Dates: start: 20110101
  2. TIENAM [Suspect]
     Dosage: UNK
     Route: 042
     Dates: start: 20110101
  3. ENDOXAN [Suspect]
     Indication: NEOPLASM MALIGNANT
     Dosage: UNK
     Route: 042
     Dates: start: 20110101
  4. VFEND [Suspect]
     Dosage: UNK
     Dates: start: 20110120
  5. MIDAZOLAM HCL [Suspect]
     Dosage: UNK
     Route: 042
     Dates: start: 20110101
  6. FENTANYL [Suspect]
     Indication: PAIN
     Dosage: UNK
     Route: 042
     Dates: start: 20110101
  7. NEXIUM [Suspect]
     Indication: GASTROOESOPHAGEAL REFLUX DISEASE
     Dosage: UNK
     Dates: start: 20110101

REACTIONS (2)
  - RASH MACULO-PAPULAR [None]
  - TOXIC SKIN ERUPTION [None]
